FAERS Safety Report 4699001-8 (Version None)
Quarter: 2005Q2

REPORT INFORMATION
  Report Type: 
  Country: None (occurrence: None)
  Receive Date: 20050623
  Receipt Date: 20050623
  Transmission Date: 20051028
  Serious: Yes (Hospitalization)
  Sender: FDA-Public Use
  Company Number: None

PATIENT
  Age: 15 Year
  Sex: Female

DRUGS (1)
  1. MINOCYCLINE [Suspect]
     Indication: ACNE
     Dosage: 400-600 MG BID ORAL
     Route: 048
     Dates: start: 20050305, end: 20050505

REACTIONS (1)
  - BENIGN INTRACRANIAL HYPERTENSION [None]
